FAERS Safety Report 12209232 (Version 27)
Quarter: 2022Q2

REPORT INFORMATION
  Report Type: Report from Study
  Country: CA (occurrence: CA)
  Receive Date: 20160324
  Receipt Date: 20220403
  Transmission Date: 20220720
  Serious: Yes (Hospitalization, Other)
  Sender: FDA-Public Use
  Company Number: PHHY2014CA035483

PATIENT
  Age: 61 Year
  Sex: Male

DRUGS (6)
  1. SANDOSTATIN [Suspect]
     Active Substance: OCTREOTIDE ACETATE
     Indication: Pancreatic neuroendocrine tumour
     Dosage: UNK, ONCE/SINGLE(STOP DATE-14 JAN 2014)
     Route: 058
     Dates: start: 20140114
  2. SANDOSTATIN [Suspect]
     Active Substance: OCTREOTIDE ACETATE
  3. SANDOSTATIN [Suspect]
     Active Substance: OCTREOTIDE ACETATE
  4. SANDOSTATIN LAR DEPOT [Suspect]
     Active Substance: OCTREOTIDE ACETATE
     Indication: Pancreatic neuroendocrine tumour
     Dosage: 30 MG, QMO (ONCE A MONTH)
     Route: 030
     Dates: start: 20140119
  5. SANDOSTATIN LAR DEPOT [Suspect]
     Active Substance: OCTREOTIDE ACETATE
  6. SANDOSTATIN LAR DEPOT [Suspect]
     Active Substance: OCTREOTIDE ACETATE

REACTIONS (22)
  - Malaise [Unknown]
  - Dyspnoea [Unknown]
  - Oedema [Unknown]
  - Intestinal obstruction [Unknown]
  - Chemical peritonitis [Unknown]
  - Pancreatic neuroendocrine tumour [Unknown]
  - Malignant neoplasm progression [Unknown]
  - Blood pressure increased [Unknown]
  - Metastases to liver [Unknown]
  - Blood pressure systolic increased [Unknown]
  - Blood pressure diastolic decreased [Unknown]
  - Hepatomegaly [Unknown]
  - Weight decreased [Unknown]
  - Weight increased [Unknown]
  - Head injury [Unknown]
  - Fall [Unknown]
  - Heart rate decreased [Unknown]
  - Headache [Recovered/Resolved]
  - Headache [Unknown]
  - Hypoglycaemia [Unknown]
  - Fatigue [Unknown]
  - Needle issue [Unknown]

NARRATIVE: CASE EVENT DATE: 20140318
